FAERS Safety Report 6833562-5 (Version None)
Quarter: 2010Q3

REPORT INFORMATION
  Report Type: 
  Country: None (occurrence: None)
  Receive Date: 20100712
  Receipt Date: 20070327
  Transmission Date: 20110219
  Serious: No
  Sender: FDA-Public Use
  Company Number: US-PFIZER INC-2007025285

PATIENT
  Sex: Male
  Weight: 81.65 kg

DRUGS (6)
  1. CHANTIX [Suspect]
     Indication: SMOKING CESSATION THERAPY
     Dates: start: 20070327
  2. VIRAMUNE [Concomitant]
     Indication: HIV INFECTION
  3. TRUVADA [Concomitant]
  4. ALPRAZOLAM [Concomitant]
     Indication: ANXIETY
  5. MULTI-VITAMINS [Concomitant]
  6. WELLBUTRIN XL [Concomitant]

REACTIONS (1)
  - HOT FLUSH [None]
